FAERS Safety Report 23401936 (Version 3)
Quarter: 2025Q2

REPORT INFORMATION
  Report Type: Spontaneous
  Country: US (occurrence: US)
  Receive Date: 20240115
  Receipt Date: 20250403
  Transmission Date: 20250716
  Serious: No
  Sender: SANOFI AVENTIS
  Company Number: US-SA-SAC20240110001525

PATIENT
  Age: 10 Year
  Sex: Female

DRUGS (1)
  1. DUPIXENT [Suspect]
     Active Substance: DUPILUMAB
     Indication: Asthma
     Dosage: 200 MG, QOW
     Route: 058
     Dates: start: 202311

REACTIONS (3)
  - Heavy menstrual bleeding [Unknown]
  - Pain in extremity [Unknown]
  - Eye swelling [Unknown]

NARRATIVE: CASE EVENT DATE: 20230101
